FAERS Safety Report 16310457 (Version 2)
Quarter: 2019Q2

REPORT INFORMATION
  Report Type: Report from Study
  Country: FR (occurrence: FR)
  Receive Date: 20190514
  Receipt Date: 20190621
  Transmission Date: 20190711
  Serious: Yes (Death)
  Sender: FDA-Public Use
  Company Number: FR-SEATTLE GENETICS-2019SGN00533

PATIENT
  Age: 50 Year
  Sex: Female
  Weight: 84 kg

DRUGS (3)
  1. BRENTUXIMAB VEDOTIN-MPI [Suspect]
     Active Substance: BRENTUXIMAB VEDOTIN
     Dosage: 137 MILLIGRAM
     Route: 042
     Dates: start: 20190109
  2. BRENTUXIMAB VEDOTIN-MPI [Suspect]
     Active Substance: BRENTUXIMAB VEDOTIN
     Indication: ANAPLASTIC LARGE CELL LYMPHOMA T- AND NULL-CELL TYPES
     Dosage: 151 MILLIGRAM
     Route: 041
     Dates: start: 20181009, end: 20190109
  3. BENDAMUSTINE [Concomitant]
     Active Substance: BENDAMUSTINE
     Dosage: UNK

REACTIONS (3)
  - Weight decreased [Unknown]
  - Off label use [Unknown]
  - Cytomegalovirus infection [Fatal]

NARRATIVE: CASE EVENT DATE: 20190205
